FAERS Safety Report 9401903 (Version 1)
Quarter: 2013Q3

REPORT INFORMATION
  Report Type: Spontaneous
  Country: FR (occurrence: FR)
  Receive Date: 20130716
  Receipt Date: 20130716
  Transmission Date: 20140515
  Serious: Yes (Death, Other)
  Sender: FDA-Public Use
  Company Number: FR-MERCK-1307FRA003287

PATIENT
  Age: 91 Year
  Sex: Female

DRUGS (8)
  1. HYZAAR 50 MG/12,5 MG, COMPRIM? PELLICUL? [Suspect]
     Indication: HYPERTENSION
     Dosage: 1 DF, QD
     Route: 048
     Dates: end: 20130618
  2. METFORMIN [Suspect]
     Indication: TYPE 2 DIABETES MELLITUS
     Dosage: 850 MG, BID
     Route: 048
     Dates: end: 20130618
  3. DIFFU-K [Suspect]
     Indication: HYPOKALAEMIA
     Dosage: 600 MG, QD
     Route: 048
     Dates: end: 20130618
  4. EFFEXOR LP [Suspect]
     Dosage: 1 DF, QD
     Route: 048
     Dates: end: 20130618
  5. LASILIX [Suspect]
     Dosage: 1 DF, QD
     Route: 048
     Dates: end: 20130618
  6. INEXIUM [Suspect]
     Dosage: 1 DF, QD
     Route: 048
     Dates: end: 20130618
  7. ACETAMINOPHEN [Suspect]
     Dosage: UNK
     Route: 048
     Dates: end: 20130618
  8. LANSOYL [Suspect]
     Indication: CONSTIPATION
     Dosage: UNK
     Route: 048
     Dates: end: 20130618

REACTIONS (6)
  - Lactic acidosis [Fatal]
  - Somnolence [Fatal]
  - Dehydration [Fatal]
  - Renal failure acute [Fatal]
  - Hyperkalaemia [Fatal]
  - Muscle spasms [Fatal]
